FAERS Safety Report 5721221-1 (Version None)
Quarter: 2008Q2

REPORT INFORMATION
  Report Type: 
  Country: None (occurrence: None)
  Receive Date: 20080428
  Receipt Date: 20080428
  Transmission Date: 20081010
  Serious: Yes (Life-Threatening, Hospitalization)
  Sender: FDA-Public Use
  Company Number: None

PATIENT
  Age: 47 Year
  Sex: Male
  Weight: 95.2554 kg

DRUGS (1)
  1. CHANTIX [Suspect]
     Indication: SMOKING CESSATION THERAPY
     Dosage: 53 TABLETS IN PACK 1 PER DAY NOVEMBER TO DECEMBER

REACTIONS (4)
  - DELUSION [None]
  - FEELING ABNORMAL [None]
  - MENTAL DISORDER [None]
  - PSYCHOTIC DISORDER [None]
